FAERS Safety Report 6272941-4 (Version None)
Quarter: 2009Q3

REPORT INFORMATION
  Report Type: 
  Country: None (occurrence: None)
  Receive Date: 20090719
  Receipt Date: 20090716
  Transmission Date: 20100115
  Serious: Yes (Life-Threatening, Hospitalization)
  Sender: FDA-Public Use
  Company Number: CO-B.I. PHARMACEUTICALS,INC./RIDGEFIELD-2009-RA-00169RA

PATIENT
  Sex: Male
  Weight: 70 kg

DRUGS (1)
  1. MIRAPEX [Suspect]
     Indication: PARKINSON'S DISEASE
     Dosage: 1 MG
     Route: 048
     Dates: start: 20090401, end: 20090501

REACTIONS (3)
  - ANGINA PECTORIS [None]
  - DIZZINESS [None]
  - SYNCOPE [None]
